FAERS Safety Report 7374584-8 (Version None)
Quarter: 2011Q1

REPORT INFORMATION
  Report Type: 
  Country: None (occurrence: None)
  Receive Date: 20110325
  Receipt Date: 20110204
  Transmission Date: 20110831
  Serious: No
  Sender: FDA-Public Use
  Company Number: US-MYLANLABS-2010S1005983

PATIENT
  Age: 55 Year
  Sex: Female
  Weight: 76.66 kg

DRUGS (6)
  1. TRAZODONE [Concomitant]
     Indication: INSOMNIA
     Dates: start: 20090101
  2. CYMBALTA [Concomitant]
     Indication: MUSCLE RELAXANT THERAPY
     Dates: start: 20080101
  3. FENTANYL-100 [Suspect]
     Indication: BACK PAIN
     Dosage: Q48H
     Route: 062
     Dates: start: 20100101
  4. FENTANYL-100 [Suspect]
     Dosage: Q48H
     Route: 062
  5. OXYCONTIN [Concomitant]
     Indication: BREAKTHROUGH PAIN
     Dates: start: 20100201
  6. LORAZEPAM [Concomitant]
     Indication: MUSCLE RELAXANT THERAPY
     Dates: start: 20070101

REACTIONS (3)
  - DRUG EFFECT DECREASED [None]
  - BACK PAIN [None]
  - DRUG SCREEN NEGATIVE [None]
